FAERS Safety Report 17520967 (Version 1)
Quarter: 2020Q1

REPORT INFORMATION
  Report Type: Report from Study
  Country: US (occurrence: US)
  Receive Date: 20200310
  Receipt Date: 20200310
  Transmission Date: 20200409
  Serious: Yes (Hospitalization, Other)
  Sender: FDA-Public Use
  Company Number: US-THERAPEUTICSMD-2019TMD04518

PATIENT
  Age: 81 Year
  Sex: Female
  Weight: 55.78 kg

DRUGS (6)
  1. IRON [Concomitant]
     Active Substance: IRON
  2. UNSPECIFIED MEDICATION(S) FOR CHOLESTEROL [Concomitant]
  3. IMVEXXY [Suspect]
     Active Substance: ESTRADIOL
     Indication: VULVOVAGINAL DRYNESS
     Dosage: 10 ?G, 2X/WEEK AT BEDTIME
     Route: 067
     Dates: start: 201901
  4. VITAMIN B12 [Concomitant]
     Active Substance: CYANOCOBALAMIN
  5. UNSPECIFIED MEDICATION FOR SLEEP [Concomitant]
  6. UNSPECIFIED MEDICATION(S) FOR BLOOD PRESSURE [Concomitant]

REACTIONS (11)
  - Uterine polyp [Recovered/Resolved]
  - Vaginal discharge [Not Recovered/Not Resolved]
  - Urethral haemorrhage [Not Recovered/Not Resolved]
  - Off label use [Not Recovered/Not Resolved]
  - Arthritis [Recovering/Resolving]
  - Spinal fracture [Not Recovered/Not Resolved]
  - Joint swelling [Not Recovered/Not Resolved]
  - Osteoarthritis [Recovering/Resolving]
  - Osteoporosis [Recovering/Resolving]
  - Genital erythema [Not Recovered/Not Resolved]
  - Pain [Recovered/Resolved]

NARRATIVE: CASE EVENT DATE: 2019
